FAERS Safety Report 6003082-9 (Version None)
Quarter: 2008Q4

REPORT INFORMATION
  Report Type: 
  Country: None (occurrence: None)
  Receive Date: 20081212
  Receipt Date: 20081212
  Transmission Date: 20090506
  Serious: Yes (Other)
  Sender: FDA-Public Use
  Company Number: None

PATIENT
  Age: 51 Year
  Sex: Female
  Weight: 107.9561 kg

DRUGS (1)
  1. ASMANEX TWISTHALER [Suspect]
     Indication: ASTHMA
     Dosage: 220MCG BID PUFF INHALER
     Route: 055
     Dates: start: 20081106, end: 20081110

REACTIONS (2)
  - OROPHARYNGEAL PAIN [None]
  - PHARYNGEAL OEDEMA [None]
